FAERS Safety Report 4361188-4 (Version None)
Quarter: 2004Q2

REPORT INFORMATION
  Report Type: 
  Country: None (occurrence: None)
  Receive Date: 20040510
  Receipt Date: 20030418
  Transmission Date: 20050107
  Serious: Yes (Life-Threatening)
  Sender: FDA-Public Use
  Company Number: TAP2003Q00659

PATIENT
  Age: 51 Year
  Sex: Female
  Weight: 52.6173 kg

DRUGS (3)
  1. LUPRON DEPOT-3 [Suspect]
     Indication: UTERINE LEIOMYOMA
     Dosage: 11.25 MG, ONCE, INTRAMUSCULAR
     Route: 030
     Dates: start: 20030219, end: 20030219
  2. MULTIVITAMIN [Concomitant]
  3. CALCIUM (CALCIUM) [Concomitant]

REACTIONS (1)
  - HYPERSENSITIVITY [None]
